FAERS Safety Report 18259106 (Version 1)
Quarter: 2020Q3

REPORT INFORMATION
  Report Type: Spontaneous
  Country: DE (occurrence: DE)
  Receive Date: 20200911
  Receipt Date: 20200911
  Transmission Date: 20201103
  Serious: Yes (Hospitalization)
  Sender: FDA-Public Use
  Company Number: DE-009507513-2009DEU000889

PATIENT
  Age: 47 Year
  Sex: Male
  Weight: 79 kg

DRUGS (51)
  1. IRINOTECAN [Suspect]
     Active Substance: IRINOTECAN
     Dosage: 253.20 MG BI WEEKLY
     Route: 042
  2. METHYLPREDNISOLONE. [Concomitant]
     Active Substance: METHYLPREDNISOLONE
     Dosage: 1 MILLIGRAM
     Route: 065
     Dates: start: 20110810, end: 20110824
  3. METHYLPREDNISOLONE. [Concomitant]
     Active Substance: METHYLPREDNISOLONE
     Dosage: 20 MILLIGRAM
     Dates: start: 20110615, end: 20110620
  4. METHYLPREDNISOLONE. [Concomitant]
     Active Substance: METHYLPREDNISOLONE
     Dosage: 500 MILLIGRAM
     Dates: start: 20120122, end: 20120122
  5. DEXAMETHASONE. [Concomitant]
     Active Substance: DEXAMETHASONE
     Dosage: 4 MILLIGRAM, DAILY DOSE
     Dates: start: 20110209, end: 20110218
  6. FRUCTOSE (+) GLYCERIN (+) SODIUM CHLORIDE [Concomitant]
     Dosage: 375 MILLILITER
     Dates: start: 20120123, end: 20120123
  7. ULTRAVIST [Suspect]
     Active Substance: IOPROMIDE
     Indication: COMPUTERISED TOMOGRAM
     Dosage: UNK
     Route: 065
     Dates: start: 20110530
  8. METHYLPREDNISOLONE. [Concomitant]
     Active Substance: METHYLPREDNISOLONE
     Dosage: 40 MILLIGRAM
     Route: 065
     Dates: start: 20110508, end: 20110515
  9. LEVETIRACETAM. [Concomitant]
     Active Substance: LEVETIRACETAM
     Dosage: 4000 MG
     Route: 065
     Dates: start: 20110413
  10. FRUCTOSE (+) GLYCERIN (+) SODIUM CHLORIDE [Concomitant]
     Dosage: 625 MILLILITER
     Dates: start: 20120124, end: 20120124
  11. IRINOTECAN [Suspect]
     Active Substance: IRINOTECAN
     Indication: GLIOBLASTOMA MULTIFORME
     Dosage: 253.20 MG BI WEEKLY
     Route: 042
  12. METHYLPREDNISOLONE. [Concomitant]
     Active Substance: METHYLPREDNISOLONE
     Dosage: 500 MILLIGRAM
     Route: 065
     Dates: start: 20110505, end: 20110505
  13. METHYLPREDNISOLONE. [Concomitant]
     Active Substance: METHYLPREDNISOLONE
     Dosage: 20 MILLIGRAM
     Dates: start: 20111214, end: 20120118
  14. LEVETIRACETAM. [Concomitant]
     Active Substance: LEVETIRACETAM
     Dosage: 4000 MG (2 IN 1 D)
     Route: 065
     Dates: start: 20110118, end: 20110126
  15. DEXAMETHASONE. [Concomitant]
     Active Substance: DEXAMETHASONE
     Dosage: 2 MILLIGRAM, DAILY DOSE
     Dates: start: 20110202, end: 20110209
  16. FRUCTOSE (+) GLYCERIN (+) SODIUM CHLORIDE [Concomitant]
     Dosage: 500 MILLILITER
     Dates: start: 20120125, end: 20120126
  17. METHIMAZOLE. [Concomitant]
     Active Substance: METHIMAZOLE
     Dosage: 80 MILLIGRAM
     Dates: start: 20110916
  18. TEMOZOLOMIDE. [Suspect]
     Active Substance: TEMOZOLOMIDE
     Indication: GLIOBLASTOMA MULTIFORME
     Dosage: 420 MILLIGRAM, D1 ? D5 EVERY 28 DAYS
     Dates: start: 20110112
  19. SULFAMETHOXAZOLE (+) TRIMETHOPRIM [Concomitant]
     Active Substance: SULFAMETHOXAZOLE\TRIMETHOPRIM
     Dosage: 960 MILLIGRAM
     Dates: start: 20110112, end: 20110314
  20. METHYLPREDNISOLONE. [Concomitant]
     Active Substance: METHYLPREDNISOLONE
     Dosage: 2 MILLIGRAM
     Dates: start: 20110728, end: 20110809
  21. METHYLPREDNISOLONE. [Concomitant]
     Active Substance: METHYLPREDNISOLONE
     Dosage: 40 MILLIGRAM
     Dates: start: 20110530, end: 20110530
  22. METHYLPREDNISOLONE. [Concomitant]
     Active Substance: METHYLPREDNISOLONE
     Dosage: 16 MILLIGRAM
     Dates: start: 20110621, end: 20110711
  23. METHYLPREDNISOLONE. [Concomitant]
     Active Substance: METHYLPREDNISOLONE
     Dosage: 1000 MG
     Dates: start: 20120120, end: 20120121
  24. METHYLPREDNISOLONE. [Concomitant]
     Active Substance: METHYLPREDNISOLONE
     Dosage: 4 MILLIGRAM
     Dates: start: 20110715, end: 20110727
  25. METHYLPREDNISOLONE. [Concomitant]
     Active Substance: METHYLPREDNISOLONE
     Dosage: 20 MILLIGRAM
     Route: 065
     Dates: start: 20110615, end: 20110712
  26. DEXAMETHASONE. [Concomitant]
     Active Substance: DEXAMETHASONE
     Dosage: 6 MILLIGRAM
     Dates: start: 20110518, end: 20110518
  27. DEXAMETHASONE. [Concomitant]
     Active Substance: DEXAMETHASONE
     Dosage: 1 MILLIGRAM, DAILY DOSE
     Dates: start: 20110228, end: 20110305
  28. DEXAMETHASONE. [Concomitant]
     Active Substance: DEXAMETHASONE
     Dosage: 6 MILLIGRAM
     Dates: start: 20110525, end: 20110529
  29. KANAMYCIN [Concomitant]
     Active Substance: KANAMYCIN A SULFATE
     Dosage: 1?1?1?1
     Dates: start: 20110314, end: 20110418
  30. IBUPROFEN. [Concomitant]
     Active Substance: IBUPROFEN
     Dosage: 400 MILLIGRAM
     Dates: start: 20110110, end: 20110126
  31. METHYLPREDNISOLONE. [Concomitant]
     Active Substance: METHYLPREDNISOLONE
     Dosage: 10 MILLIGRAM
     Dates: start: 20110712, end: 20110714
  32. METHYLPREDNISOLONE. [Concomitant]
     Active Substance: METHYLPREDNISOLONE
     Dosage: 2 MILLIGRAM
     Route: 065
     Dates: start: 20110728, end: 20110810
  33. DEXAMETHASONE. [Concomitant]
     Active Substance: DEXAMETHASONE
     Dosage: 3 MILLIGRAM, DAILY DOSE
     Dates: start: 20110218, end: 20110223
  34. ONDANSETRON [Concomitant]
     Active Substance: ONDANSETRON
     Dosage: 4 MILLIGRAM
     Dates: start: 20110112, end: 20110222
  35. METHYLPREDNISOLONE. [Concomitant]
     Active Substance: METHYLPREDNISOLONE
     Dosage: 10 MILLIGRAM
     Route: 065
     Dates: start: 20110712, end: 20110728
  36. LEVETIRACETAM. [Concomitant]
     Active Substance: LEVETIRACETAM
     Dosage: 3000 MG
     Route: 065
     Dates: start: 20110125, end: 20110413
  37. RAMIPRIL. [Concomitant]
     Active Substance: RAMIPRIL
     Dosage: 5 MILLIGRAM
     Dates: start: 20110916
  38. METHYLPREDNISOLONE. [Concomitant]
     Active Substance: METHYLPREDNISOLONE
     Dosage: 120 MILLIGRAM
     Dates: start: 20110501, end: 20110605
  39. METHYLPREDNISOLONE. [Concomitant]
     Active Substance: METHYLPREDNISOLONE
     Dosage: 500 MILLIGRAM
     Dates: start: 20120119, end: 20120119
  40. METHYLPREDNISOLONE. [Concomitant]
     Active Substance: METHYLPREDNISOLONE
     Dosage: 1000 MG
     Dates: start: 20110502, end: 20110504
  41. METHYLPREDNISOLONE. [Concomitant]
     Active Substance: METHYLPREDNISOLONE
     Dosage: 500 MILLIGRAM
     Dates: start: 20110502, end: 20110502
  42. METHYLPREDNISOLONE. [Concomitant]
     Active Substance: METHYLPREDNISOLONE
     Dosage: 120 MILLIGRAM
     Route: 065
     Dates: start: 20120127, end: 20120201
  43. METHYLPREDNISOLONE. [Concomitant]
     Active Substance: METHYLPREDNISOLONE
     Dosage: 500 MILLIGRAM
     Dates: start: 20120125, end: 20120125
  44. METHYLPREDNISOLONE. [Concomitant]
     Active Substance: METHYLPREDNISOLONE
     Dosage: 1000 MG
     Dates: start: 20120123, end: 20120124
  45. LEVETIRACETAM. [Concomitant]
     Active Substance: LEVETIRACETAM
     Dosage: 2000 MG
     Route: 065
     Dates: start: 20110110, end: 20110118
  46. DEXAMETHASONE. [Concomitant]
     Active Substance: DEXAMETHASONE
     Dosage: 2 MILLIGRAM, DAILY DOSE
     Dates: start: 20110223, end: 20110228
  47. PROPRANOLOL [Concomitant]
     Active Substance: PROPRANOLOL HYDROCHLORIDE
     Dosage: 20 MILLIGRAM
     Dates: start: 20110918
  48. BEVACIZUMAB. [Suspect]
     Active Substance: BEVACIZUMAB
     Indication: GLIOBLASTOMA MULTIFORME
     Dosage: 820 MILLIGRAM, BI WEEKLY
     Route: 042
  49. METHYLPREDNISOLONE. [Concomitant]
     Active Substance: METHYLPREDNISOLONE
     Dosage: 40 MILLIGRAM
     Dates: start: 20110606, end: 20110614
  50. METHYLPREDNISOLONE. [Concomitant]
     Active Substance: METHYLPREDNISOLONE
     Dosage: 1 MILLIGRAM
     Dates: start: 20110810, end: 20110824
  51. DEXAMETHASONE. [Concomitant]
     Active Substance: DEXAMETHASONE
     Dosage: 4 MILLIGRAM, DAILY DOSE
     Dates: start: 20110305, end: 20110502

REACTIONS (1)
  - Hyperthyroidism [Recovered/Resolved]

NARRATIVE: CASE EVENT DATE: 20110907
